FAERS Safety Report 6296922-X (Version None)
Quarter: 2009Q3

REPORT INFORMATION
  Report Type: 
  Country: None (occurrence: None)
  Receive Date: 20090804
  Receipt Date: 20090727
  Transmission Date: 20100115
  Serious: No
  Sender: FDA-Public Use
  Company Number: US-B.I. PHARMACEUTICALS,INC./RIDGEFIELD-2009-BP-08966BP

PATIENT
  Sex: Male

DRUGS (5)
  1. VIRAMUNE [Suspect]
     Indication: HIV INFECTION
     Dosage: 400 MG
     Route: 048
     Dates: start: 20090401
  2. SUSTIVA [Concomitant]
     Indication: HIV INFECTION
  3. ABILIFY [Concomitant]
     Indication: DEPRESSION
  4. KLONOPIN [Concomitant]
     Indication: ANXIETY
  5. PROZAC [Concomitant]
     Indication: DEPRESSION

REACTIONS (4)
  - DYSPEPSIA [None]
  - DYSPHAGIA [None]
  - FOREIGN BODY TRAUMA [None]
  - NON-CARDIAC CHEST PAIN [None]
